FAERS Safety Report 5548745-4 (Version None)
Quarter: 2007Q4

REPORT INFORMATION
  Report Type: 
  Country: None (occurrence: None)
  Receive Date: 20071206
  Receipt Date: 20071121
  Transmission Date: 20080405
  Serious: Yes (Other)
  Sender: FDA-Public Use
  Company Number: 164583ISR

PATIENT
  Age: 87 Year
  Sex: Female

DRUGS (5)
  1. VINCRISTINE [Suspect]
     Indication: B-CELL LYMPHOMA
     Dosage: 1 MG/M2,1 IN 3 WK)
  2. DOXORUBICIN HCL [Suspect]
     Indication: B-CELL LYMPHOMA
     Dosage: 1.1905 MG/M2 (25 MG/M2,1 IN 3 WK)
  3. PREDNISONE [Suspect]
     Indication: B-CELL LYMPHOMA
     Dosage: 1.9048 MG/M2 (40 MG/M2,1 IN 3 WK)
  4. CYCLOPHOSPHAMIDE [Suspect]
     Indication: B-CELL LYMPHOMA
     Dosage: 19.0476 MG/M2 (400 MG/M2,1 IN 3 WK)
  5. RITUXIMAB [Suspect]
     Indication: B-CELL LYMPHOMA
     Dosage: 17.8571 MG/M2 (375 MG/M2,1 IN 3 WK)

REACTIONS (12)
  - ACUTE HEPATIC FAILURE [None]
  - ARRHYTHMIA [None]
  - BLOOD LACTIC ACID INCREASED [None]
  - BLOOD POTASSIUM DECREASED [None]
  - BLOOD SODIUM DECREASED [None]
  - HYPERTROPHIC CARDIOMYOPATHY [None]
  - ISCHAEMIC HEPATITIS [None]
  - LOSS OF CONSCIOUSNESS [None]
  - OEDEMA PERIPHERAL [None]
  - PLEURAL EFFUSION [None]
  - PULMONARY OEDEMA [None]
  - RENAL FAILURE ACUTE [None]
